FAERS Safety Report 17040995 (Version 2)
Quarter: 2019Q4

REPORT INFORMATION
  Report Type: Spontaneous
  Country: US (occurrence: US)
  Receive Date: 20191115
  Receipt Date: 20191115
  Transmission Date: 20200122
  Serious: No
  Sender: FDA-Public Use
  Company Number: US-ALKEM LABORATORIES LIMITED-US-ALKEM-2019-01261

PATIENT
  Age: 83 Year
  Sex: Male

DRUGS (2)
  1. RIFABUTIN. [Concomitant]
     Active Substance: RIFABUTIN
     Indication: PULMONARY TUBERCULOSIS
     Dosage: UNK
     Route: 065
  2. ISONIAZID. [Suspect]
     Active Substance: ISONIAZID
     Indication: PULMONARY TUBERCULOSIS
     Dosage: 300 MG, QD
     Route: 065

REACTIONS (1)
  - Hepatic enzyme increased [Recovered/Resolved]
